FAERS Safety Report 8228864-4 (Version None)
Quarter: 2012Q1

REPORT INFORMATION
  Report Type: 
  Country: None (occurrence: None)
  Receive Date: 20120322
  Receipt Date: 20120307
  Transmission Date: 20120608
  Serious: Yes (Hospitalization)
  Sender: FDA-Public Use
  Company Number: JP-WATSON-2012-02861

PATIENT
  Age: 81 Year
  Sex: Female

DRUGS (2)
  1. RISPERIDONE [Suspect]
     Indication: DEMENTIA
     Dosage: 1 MG/ML/DAY
  2. TIAPRIDE [Suspect]
     Indication: AGITATION
     Dosage: 25 MG, TID

REACTIONS (2)
  - DRUG INEFFECTIVE [None]
  - HANGOVER [None]
